FAERS Safety Report 24594378 (Version 1)
Quarter: 2024Q4

REPORT INFORMATION
  Report Type: Spontaneous
  Country: BR (occurrence: BR)
  Receive Date: 20241108
  Receipt Date: 20241108
  Transmission Date: 20250114
  Serious: Yes (Hospitalization)
  Sender: GUERBET
  Company Number: BR-GUERBET / GUERBET PRODUTOS RADIOLOGICOS LTDA-BR-20240306

PATIENT
  Sex: Female

DRUGS (1)
  1. DOTAREM [Suspect]
     Active Substance: GADOTERATE MEGLUMINE
     Indication: Magnetic resonance imaging abdominal
     Route: 042
     Dates: start: 20241021, end: 20241021

REACTIONS (3)
  - Dyspnoea [Recovering/Resolving]
  - Chills [Recovering/Resolving]
  - Throat irritation [Recovering/Resolving]

NARRATIVE: CASE EVENT DATE: 20241021
